FAERS Safety Report 24383509 (Version 1)
Quarter: 2024Q4

REPORT INFORMATION
  Report Type: Report from Study
  Country: ES (occurrence: ES)
  Receive Date: 20241001
  Receipt Date: 20241001
  Transmission Date: 20250114
  Serious: Yes (Other)
  Sender: TEVA
  Company Number: ES-TEVA-VS-3247932

PATIENT
  Age: 66 Year
  Sex: Female

DRUGS (4)
  1. TERIPARATIDE [Suspect]
     Active Substance: TERIPARATIDE
     Indication: Osteoporosis
     Dosage: FORM STRENGTH: 20MCG/80MCL
     Route: 065
     Dates: start: 20240919
  2. ACETAMINOPHEN\TRAMADOL HYDROCHLORIDE [Concomitant]
     Active Substance: ACETAMINOPHEN\TRAMADOL HYDROCHLORIDE
     Indication: Pain
     Dosage: TIME INTERVAL: 0.33333333 DAYS: DOSAGE: 1-1-1, START DATE: LONG AGO
     Dates: start: 202409
  3. CALCIUM CARBONATE\CHOLECALCIFEROL [Concomitant]
     Active Substance: CALCIUM CARBONATE\CHOLECALCIFEROL
     Indication: Osteoporosis
     Dates: start: 202409
  4. RIFAXIMIN [Concomitant]
     Active Substance: RIFAXIMIN
     Indication: Infection prophylaxis
     Dosage: DOSAGE: 1 WEEK/ MONTH; START DATE: LONG AGO

REACTIONS (2)
  - Injection site erythema [Recovered/Resolved]
  - Injection site haematoma [Not Recovered/Not Resolved]

NARRATIVE: CASE EVENT DATE: 20240922
